FAERS Safety Report 9377143 (Version 1)
Quarter: 2013Q2

REPORT INFORMATION
  Report Type: Spontaneous
  Country: US (occurrence: None)
  Receive Date: 20130628
  Receipt Date: 20130628
  Transmission Date: 20140414
  Serious: Yes (Hospitalization)
  Sender: FDA-Public Use
  Company Number: None

PATIENT
  Age: 77 Year
  Sex: Female
  Weight: 99 kg

DRUGS (25)
  1. TYGACIL [Suspect]
     Indication: POST PROCEDURAL SEPSIS
     Dosage: STRENGTH:  50MG PER 5ML?QUANTITY:  1 VIAL?FREQUENCY:  EVERY 12 HOURS?HOW:  IV?
     Route: 042
     Dates: start: 20130219, end: 20130227
  2. HYDRALAZINE [Concomitant]
  3. PHENERGAN [Concomitant]
  4. AMLODIPINE [Concomitant]
  5. LOVENOX [Concomitant]
  6. FENOFIBRATE [Concomitant]
  7. FENOFIBRATE [Concomitant]
  8. LEVOTHYROXINE [Concomitant]
  9. METOPROLOL [Concomitant]
  10. METOPROLOL [Concomitant]
  11. OMEPRAZOLE [Concomitant]
  12. OXYCODONE [Concomitant]
  13. WARFARIN [Concomitant]
  14. TESSALON [Concomitant]
  15. NORCO [Concomitant]
  16. ZOFRAN [Concomitant]
  17. GLUCEMA [Concomitant]
  18. BENADRYL [Concomitant]
  19. IRON [Concomitant]
  20. CULTURELLE [Concomitant]
  21. MIRALAX [Concomitant]
  22. OCUVITE [Concomitant]
  23. TYLENOL [Concomitant]
  24. MAALOX [Concomitant]
  25. MILK OF MAGNESIUM [Concomitant]

REACTIONS (11)
  - Nausea [None]
  - Vomiting [None]
  - Pancreatitis acute [None]
  - Nephritis allergic [None]
  - Blood calcium increased [None]
  - Blood phosphorus increased [None]
  - Mental status changes [None]
  - Tongue dry [None]
  - Skin turgor decreased [None]
  - Lethargy [None]
  - Dialysis [None]
